FAERS Safety Report 10286815 (Version 1)
Quarter: 2014Q3

REPORT INFORMATION
  Report Type: Report from Study
  Country: US (occurrence: US)
  Receive Date: 20140709
  Receipt Date: 20140709
  Transmission Date: 20150326
  Serious: Yes (Hospitalization)
  Sender: FDA-Public Use
  Company Number: US-ACTELION-A-NJ2014-101752

PATIENT
  Age: 50 Year
  Sex: Female

DRUGS (1)
  1. VENTAVIS [Suspect]
     Active Substance: ILOPROST
     Indication: COR PULMONALE CHRONIC
     Dosage: 5 MCG 6-9 TIMES/DAILY
     Route: 055
     Dates: start: 20130501

REACTIONS (3)
  - White blood cell count decreased [Unknown]
  - Somnolence [Unknown]
  - Chemotherapy [Unknown]

NARRATIVE: CASE EVENT DATE: 201406
